FAERS Safety Report 4437307-8 (Version None)
Quarter: 2004Q3

REPORT INFORMATION
  Report Type: 
  Country: None (occurrence: None)
  Receive Date: 20040827
  Receipt Date: 20040816
  Transmission Date: 20050211
  Serious: Yes (Hospitalization, Other)
  Sender: FDA-Public Use
  Company Number: USA-2004-0012715

PATIENT
  Age: 38 Year
  Sex: Female

DRUGS (10)
  1. OXYCONTIN [Suspect]
     Indication: PAIN
     Dates: start: 20031208
  2. MORPHINE SULFATE [Suspect]
     Indication: PAIN
     Dosage: 20 MG,
     Dates: start: 20031208
  3. MORPHINE SULFATE [Suspect]
  4. METOCLOPRAMIDE [Suspect]
  5. IRINOTECAN (IRINOTECAN) [Suspect]
  6. CITALOPRAM [Suspect]
  7. GEMCITABINE (GEMCITABINE) [Suspect]
  8. MEGACE [Concomitant]
  9. DOLASETRON (DOLASETRON) [Concomitant]
  10. LEVOFLOXACIN [Concomitant]

REACTIONS (10)
  - ABDOMINAL DISTENSION [None]
  - ABDOMINAL PAIN [None]
  - ASCITES [None]
  - FAECAL VOLUME INCREASED [None]
  - FLATULENCE [None]
  - INFREQUENT BOWEL MOVEMENTS [None]
  - MALIGNANT NEOPLASM PROGRESSION [None]
  - PAIN EXACERBATED [None]
  - PLEURAL EFFUSION [None]
  - ULTRASOUND ABDOMEN ABNORMAL [None]
